FAERS Safety Report 21248917 (Version 1)
Quarter: 2022Q3

REPORT INFORMATION
  Report Type: Report from Study
  Country: CA (occurrence: CA)
  Receive Date: 20220824
  Receipt Date: 20220824
  Transmission Date: 20221027
  Serious: Yes (Death)
  Sender: FDA-Public Use
  Company Number: CA-NOVARTISPH-NVSC2022CA137641

PATIENT
  Age: 90 Year
  Sex: Female

DRUGS (1)
  1. ELTROMBOPAG OLAMINE [Suspect]
     Active Substance: ELTROMBOPAG OLAMINE
     Indication: Immune thrombocytopenia
     Dosage: 75 MG, QD
     Route: 048
     Dates: start: 20220607

REACTIONS (2)
  - Death [Fatal]
  - Diarrhoea [Unknown]

NARRATIVE: CASE EVENT DATE: 20220601
